FAERS Safety Report 8276670-7 (Version None)
Quarter: 2012Q2

REPORT INFORMATION
  Report Type: 
  Country: None (occurrence: None)
  Receive Date: 20120412
  Receipt Date: 20120412
  Transmission Date: 20120825
  Serious: Yes (Hospitalization)
  Sender: FDA-Public Use
  Company Number: None

PATIENT
  Age: 83 Year
  Sex: Male
  Weight: 94 kg

DRUGS (3)
  1. WARFARIN SODIUM [Suspect]
     Indication: DEEP VEIN THROMBOSIS
     Dosage: 3 MG
     Route: 048
  2. ATENOLOL [Concomitant]
     Route: 048
  3. LATANOPROST [Concomitant]
     Route: 047

REACTIONS (3)
  - INTERNATIONAL NORMALISED RATIO INCREASED [None]
  - HAEMATURIA [None]
  - OCCULT BLOOD POSITIVE [None]
